FAERS Safety Report 8593577 (Version 2)
Quarter: 2013Q1

REPORT INFORMATION
  Report Type: Spontaneous
  Country: US (occurrence: US)
  Receive Date: 20120604
  Receipt Date: 20130107
  Transmission Date: 20140127
  Serious: Yes (Hospitalization)
  Sender: FDA-Public Use
  Company Number: US-BAYER-2012-053695

PATIENT
  Age: 33 Year
  Sex: Female
  Weight: 65.76 kg

DRUGS (8)
  1. YASMIN [Suspect]
     Indication: PREMENSTRUAL SYNDROME
     Dosage: UNK
     Dates: start: 200505, end: 201205
  2. OCELLA [Suspect]
     Indication: PREMENSTRUAL SYNDROME
     Dosage: UNK
     Dates: start: 200905
  3. NSAID^S [Concomitant]
     Dosage: UNK
     Dates: start: 20120423
  4. FOLIC ACID [Concomitant]
  5. PSYLLIUM HUSK [Concomitant]
  6. ALPRAZOLAM [Concomitant]
     Indication: ANXIETY
     Dosage: 0.5 MG, BID, AS NEEDED
     Dates: start: 20120424
  7. SIMVASTATIN [Concomitant]
     Indication: HYPERLIPIDAEMIA
  8. DILTIAZEM [Concomitant]

REACTIONS (16)
  - Cerebrovascular accident [None]
  - Nervous system disorder [None]
  - Cerebrovascular accident [None]
  - Deep vein thrombosis [None]
  - Thrombosis [None]
  - Injury [None]
  - Emotional distress [None]
  - Impaired work ability [None]
  - Gait disturbance [None]
  - Balance disorder [None]
  - Cognitive disorder [None]
  - Visual field defect [None]
  - Fear of disease [None]
  - Injury [None]
  - Off label use [None]
  - Peripheral artery thrombosis [None]
